FAERS Safety Report 5460803-1 (Version None)
Quarter: 2007Q3

REPORT INFORMATION
  Report Type: 
  Country: None (occurrence: None)
  Receive Date: 20070919
  Receipt Date: 20070815
  Transmission Date: 20080115
  Serious: No
  Sender: FDA-Public Use
  Company Number: US-BOEHRINGER INGELHEIM PHARMACEUTICALS, INC.-2006-BP-07105BP

PATIENT
  Sex: Male

DRUGS (30)
  1. MIRAPEX [Suspect]
     Indication: RESTLESS LEGS SYNDROME
     Dates: start: 20030113, end: 20060325
  2. MIRAPEX [Suspect]
     Indication: PARKINSON'S DISEASE
  3. COENZYME Q10 [Concomitant]
     Dates: start: 20031020
  4. SINEMET [Concomitant]
     Indication: PARKINSON'S DISEASE
     Dates: start: 20050801, end: 20051213
  5. SINEMET [Concomitant]
     Dates: start: 20051213
  6. KLONOPIN [Concomitant]
     Indication: PANIC ATTACK
     Route: 048
     Dates: start: 20030101
  7. PRILOSEC [Concomitant]
  8. TYLENOL W/ CODEINE [Concomitant]
     Indication: MYALGIA
  9. ROBAXIN [Concomitant]
     Indication: MYALGIA
  10. LIPITOR [Concomitant]
     Route: 048
     Dates: start: 19990101, end: 20051225
  11. LIPITOR [Concomitant]
     Route: 048
     Dates: start: 20051228
  12. CLONAZEPAM [Concomitant]
     Indication: ANXIETY
     Dates: start: 20030203
  13. NEXIUM [Concomitant]
  14. PAXIL [Concomitant]
  15. ASPIRIN [Concomitant]
  16. FOLIC ACID [Concomitant]
     Dates: end: 20051220
  17. ZANTAC 150 [Concomitant]
     Route: 048
     Dates: start: 20030519
  18. ALLEGRA [Concomitant]
     Indication: HYPERSENSITIVITY
     Dates: start: 20030519
  19. MAALOX [Concomitant]
     Indication: GASTROOESOPHAGEAL REFLUX DISEASE
     Dates: start: 20030101
  20. PREVACID [Concomitant]
     Indication: GASTROOESOPHAGEAL REFLUX DISEASE
     Route: 048
     Dates: start: 20030825
  21. VIOXX [Concomitant]
     Indication: NECK PAIN
     Dates: start: 20031001
  22. PRILOSEC [Concomitant]
  23. MULTI-VITAMIN [Concomitant]
     Dates: start: 20040101
  24. LISINOPRIL [Concomitant]
     Indication: HYPERTENSION
     Dates: end: 20051220
  25. ADVIL LIQUI-GELS [Concomitant]
     Dates: start: 20050101
  26. ALLEGRA D 24 HOUR [Concomitant]
     Route: 048
     Dates: start: 20051220
  27. METAPROLOL/TOPROL XR [Concomitant]
     Route: 048
     Dates: start: 20051220
  28. ADVIL LIQUI-GELS [Concomitant]
     Dates: start: 20060914
  29. AZILECT [Concomitant]
     Indication: PARKINSON'S DISEASE
     Dates: start: 20061018
  30. PAXIL CR [Concomitant]
     Indication: ANXIETY
     Dates: start: 20030226

REACTIONS (8)
  - ANXIETY [None]
  - DEPRESSION [None]
  - EMOTIONAL DISTRESS [None]
  - HYPERPHAGIA [None]
  - HYPERSEXUALITY [None]
  - OBSESSIVE-COMPULSIVE DISORDER [None]
  - PATHOLOGICAL GAMBLING [None]
  - WEIGHT INCREASED [None]
